FAERS Safety Report 6574712-8 (Version None)
Quarter: 2010Q1

REPORT INFORMATION
  Report Type: 
  Country: None (occurrence: None)
  Receive Date: 20100209
  Receipt Date: 20100203
  Transmission Date: 20100710
  Serious: Yes (Other)
  Sender: FDA-Public Use
  Company Number: PHHY2009AU54712

PATIENT
  Sex: Female

DRUGS (1)
  1. FEMARA [Suspect]
     Dosage: UNK
     Route: 048
     Dates: start: 20090312, end: 20091214

REACTIONS (6)
  - ARTHRALGIA [None]
  - ASTHENIA [None]
  - FATIGUE [None]
  - GAIT DISTURBANCE [None]
  - JOINT STIFFNESS [None]
  - WEIGHT INCREASED [None]
